FAERS Safety Report 19988107 (Version 2)
Quarter: 2021Q4

REPORT INFORMATION
  Report Type: Report from Study
  Country: CO (occurrence: CO)
  Receive Date: 20211022
  Receipt Date: 20211101
  Transmission Date: 20220303
  Serious: Yes (Death, Hospitalization)
  Sender: FDA-Public Use
  Company Number: CO-UCBSA-2021049242

PATIENT
  Age: 74 Year
  Sex: Female

DRUGS (1)
  1. CERTOLIZUMAB PEGOL [Suspect]
     Active Substance: CERTOLIZUMAB PEGOL
     Indication: Rheumatoid arthritis
     Dosage: 400 MILLIGRAM, EV 4 WEEKS
     Route: 058
     Dates: start: 20210302, end: 20210902

REACTIONS (5)
  - Systemic lupus erythematosus [Fatal]
  - Renal failure [Recovering/Resolving]
  - Anaemia [Recovering/Resolving]
  - Leukocytosis [Recovering/Resolving]
  - Thrombosis [Recovering/Resolving]

NARRATIVE: CASE EVENT DATE: 20210923
